FAERS Safety Report 16172886 (Version 1)
Quarter: 2019Q2

REPORT INFORMATION
  Report Type: Spontaneous
  Country: FR (occurrence: FR)
  Receive Date: 20190409
  Receipt Date: 20190409
  Transmission Date: 20190711
  Serious: Yes (Other)
  Sender: FDA-Public Use
  Company Number: FR-ACS-001383

PATIENT
  Age: 72 Year
  Sex: Female

DRUGS (1)
  1. IMIPENEM/CILASTATIN SODIUM [Suspect]
     Active Substance: CILASTATIN SODIUM\IMIPENEM
     Route: 065

REACTIONS (1)
  - Linear IgA disease [Recovered/Resolved]
